FAERS Safety Report 9288720 (Version 1)
Quarter: 2013Q2

REPORT INFORMATION
  Report Type: Report from Study
  Country: FR (occurrence: FR)
  Receive Date: 20130514
  Receipt Date: 20130514
  Transmission Date: 20140414
  Serious: Yes (Other)
  Sender: FDA-Public Use
  Company Number: FR-GLAXOSMITHKLINE-B0889860A

PATIENT
  Sex: Female

DRUGS (1)
  1. ARZERRA [Suspect]
     Indication: CHRONIC LYMPHOCYTIC LEUKAEMIA
     Route: 042
     Dates: start: 20100526, end: 20100708

REACTIONS (6)
  - Streptococcal infection [Unknown]
  - Arthritis bacterial [Unknown]
  - Erythema [Unknown]
  - Oedema peripheral [Unknown]
  - Paraesthesia [Unknown]
  - Diarrhoea [Unknown]
